FAERS Safety Report 7242743-0 (Version None)
Quarter: 2011Q1

REPORT INFORMATION
  Report Type: 
  Country: None (occurrence: None)
  Receive Date: 20110125
  Receipt Date: 20110120
  Transmission Date: 20110831
  Serious: Yes (Death, Hospitalization, Other)
  Sender: FDA-Public Use
  Company Number: US-ASTELLAS-2011US000042

PATIENT

DRUGS (5)
  1. PROGRAF [Suspect]
     Dosage: 7 MG, BID
     Route: 048
  2. PROGRAF [Suspect]
     Indication: HEART TRANSPLANT
     Dosage: UNKNOWN/D
     Route: 048
     Dates: start: 20000509, end: 20101228
  3. PROGRAF [Suspect]
     Dosage: 3 MG Q AM, 2 MG Q PM
  4. PREDNISONE [Concomitant]
     Indication: HEART TRANSPLANT
     Dosage: 10 MG, UID/QD
     Route: 048
  5. CELLCEPT [Concomitant]
     Indication: HEART TRANSPLANT
     Dosage: 500 MG, BID
     Route: 048

REACTIONS (7)
  - PYREXIA [None]
  - BLADDER TRANSITIONAL CELL CARCINOMA [None]
  - PLEURAL EFFUSION [None]
  - PROSTATE CANCER [None]
  - FLUID OVERLOAD [None]
  - RENAL FAILURE CHRONIC [None]
  - ANAEMIA [None]
